FAERS Safety Report 6800297-4 (Version None)
Quarter: 2010Q2

REPORT INFORMATION
  Report Type: 
  Country: None (occurrence: None)
  Receive Date: 20100616
  Receipt Date: 20100608
  Transmission Date: 20101027
  Serious: Yes (Other)
  Sender: FDA-Public Use
  Company Number: WAES 0908USA01528

PATIENT
  Age: 84 Year
  Sex: Female

DRUGS (6)
  1. HYZAAR [Suspect]
     Indication: HYPERTENSION
     Dosage: 1 DOSE/DAILY/ PO
     Route: 048
     Dates: start: 20070622
  2. ALTAT [Concomitant]
  3. GASLON N [Concomitant]
  4. MARZULENE-S [Concomitant]
  5. MEVAN [Concomitant]
  6. ULCERIMIN [Concomitant]

REACTIONS (1)
  - GASTRIC CANCER [None]
